FAERS Safety Report 9850178 (Version 1)
Quarter: 2013Q4

REPORT INFORMATION
  Report Type: Spontaneous
  Country: US (occurrence: None)
  Receive Date: 20131226
  Receipt Date: 20131226
  Transmission Date: 20140711
  Serious: Yes (Other)
  Sender: FDA-Public Use
  Company Number: PHEH2012US020403

PATIENT
  Age: 75 Year
  Sex: Female

DRUGS (6)
  1. DIOVAN (VALSARTAN) [Suspect]
  2. CALAN - SLOW RELEASE (VERAPAMIL HYDROCHLORIDE) [Concomitant]
  3. SYNTHROID (LEVOTHYROXINE SODIUM) [Concomitant]
  4. CELEBREX (CELECOXI B) [Concomitant]
  5. XALATAN (LATANOPROST) [Concomitant]
  6. PLAQUENIL (HYDROXYCHLOROQUINE SULFATE) / ORAL / TABLET, FILM COATED / 200 MILLIGRAM(S) [Concomitant]

REACTIONS (3)
  - Blood pressure increased [None]
  - Neck pain [None]
  - Headache [None]
